FAERS Safety Report 10247513 (Version 1)
Quarter: 2014Q2

REPORT INFORMATION
  Report Type: Spontaneous
  Country: GR (occurrence: None)
  Receive Date: 20140618
  Receipt Date: 20140618
  Transmission Date: 20141212
  Serious: Yes (Hospitalization)
  Sender: FDA-Public Use
  Company Number: 7297442

PATIENT
  Age: 66 Year
  Sex: Female

DRUGS (1)
  1. THYROXINE [Suspect]
     Indication: HYPOTHYROIDISM
     Dosage: FROM 12 YEARS PRIOR

REACTIONS (6)
  - Vitamin D deficiency [None]
  - Hyperthyroidism [None]
  - Fatigue [None]
  - Dyspnoea [None]
  - Asthenia [None]
  - Gait disturbance [None]
